FAERS Safety Report 4823816-6 (Version None)
Quarter: 2005Q4

REPORT INFORMATION
  Report Type: 
  Country: None (occurrence: None)
  Receive Date: 20051109
  Receipt Date: 20051018
  Transmission Date: 20060501
  Serious: Yes (Hospitalization, Other)
  Sender: FDA-Public Use
  Company Number: PHBS2005JP15502

PATIENT
  Age: 59 Year
  Sex: Female
  Weight: 37 kg

DRUGS (12)
  1. NEORAL [Suspect]
     Indication: STEM CELL TRANSPLANT
     Dosage: 120 MG/DAY
     Route: 048
     Dates: start: 20050713
  2. NEORAL [Suspect]
     Dosage: 140 MG/DAY
     Route: 048
     Dates: end: 20051004
  3. DEPAS [Concomitant]
     Indication: SLEEP DISORDER
     Dates: start: 20051015
  4. NAUZELIN [Concomitant]
     Indication: ANTIEMETIC SUPPORTIVE CARE
     Route: 048
     Dates: start: 20051015, end: 20051016
  5. CYCLOSPORINE [Suspect]
     Indication: STEM CELL TRANSPLANT
     Dosage: 126 MG/DAY
     Route: 041
     Dates: start: 20050713
  6. CYCLOSPORINE [Suspect]
     Dosage: 60 MG/DAY
     Route: 041
  7. FLUDARABINE PHOSPHATE [Concomitant]
     Dosage: 39 MG/D
     Route: 042
     Dates: start: 20050706, end: 20050711
  8. BUSULFAN [Concomitant]
     Dosage: 168 MG/DAY
     Route: 048
     Dates: start: 20050708, end: 20050709
  9. METHOTREXATE [Concomitant]
     Indication: STEM CELL TRANSPLANT
     Dosage: 12.9 MG/D
     Route: 042
     Dates: start: 20050715
  10. METHOTREXATE [Concomitant]
     Dosage: 9.1 MG/D
     Route: 042
  11. METHOTREXATE [Concomitant]
     Dosage: 9.1 MG/DAY
     Route: 042
     Dates: end: 20050720
  12. COTRIM [Concomitant]
     Indication: INFECTION PROPHYLAXIS
     Dosage: 1 DF, QD
     Route: 048
     Dates: start: 20050824, end: 20051019

REACTIONS (26)
  - ABDOMINAL PAIN [None]
  - ALANINE AMINOTRANSFERASE INCREASED [None]
  - ANOREXIA [None]
  - ASPARTATE AMINOTRANSFERASE INCREASED [None]
  - BLOOD ALKALINE PHOSPHATASE INCREASED [None]
  - BLOOD POTASSIUM DECREASED [None]
  - DIARRHOEA [None]
  - FATIGUE [None]
  - GAMMA-GLUTAMYLTRANSFERASE INCREASED [None]
  - GRAFT VERSUS HOST DISEASE [None]
  - HAEMATOCHEZIA [None]
  - HAEMATOCRIT DECREASED [None]
  - HAEMOGLOBIN DECREASED [None]
  - HYPOALBUMINAEMIA [None]
  - HYPONATRAEMIA [None]
  - HYPOPROTEINAEMIA [None]
  - INSOMNIA [None]
  - LYMPHOCYTE COUNT DECREASED [None]
  - NAUSEA [None]
  - NEUTROPHIL COUNT DECREASED [None]
  - PANCYTOPENIA [None]
  - PARENTERAL NUTRITION [None]
  - RED BLOOD CELL COUNT DECREASED [None]
  - RETICULOCYTE COUNT INCREASED [None]
  - VOMITING [None]
  - WHITE BLOOD CELL COUNT DECREASED [None]
